FAERS Safety Report 8945214 (Version 1)
Quarter: 2012Q4

REPORT INFORMATION
  Report Type: 
  Country: US (occurrence: US)
  Receive Date: 20121205
  Receipt Date: 20121205
  Transmission Date: 20130627
  Serious: Yes (Other)
  Sender: FDA-Public Use
  Company Number: US-VERTEX PHARMACEUTICAL INC.-AE-2011-001835

PATIENT
  Age: 55 Year
  Sex: Female
  Weight: 58.96 kg

DRUGS (10)
  1. INCIVEK [Suspect]
     Indication: HEPATITIS C
     Dosage: 750 mg, tid
     Route: 048
     Dates: start: 20110922, end: 20111022
  2. INCIVEK [Suspect]
     Dosage: 750 mg, tid
     Route: 048
     Dates: start: 20111105, end: 20111109
  3. INCIVEK [Suspect]
     Dosage: UNK
     Route: 048
     Dates: start: 20121115
  4. PEGASYS [Suspect]
     Indication: HEPATITIS C
     Dosage: 180 ?g, UNK
     Route: 058
     Dates: start: 20110922, end: 20111022
  5. PEGASYS [Suspect]
     Dosage: 180 ?g, UNK
     Dates: start: 20111105, end: 20111109
  6. RIBAVIRIN [Suspect]
     Indication: HEPATITIS C
     Dosage: UNK
     Route: 048
     Dates: start: 20110922, end: 20111022
  7. RIBAVIRIN [Suspect]
     Dosage: UNK
     Dates: start: 20111105, end: 20111109
  8. LEVOTRIX [Concomitant]
     Indication: HYPOTHYROIDISM
     Route: 048
  9. OMEPRAZOLE [Concomitant]
     Indication: GASTROOESOPHAGEAL REFLUX DISEASE
     Route: 048
  10. TYLENOL [Concomitant]
     Indication: PAIN
     Route: 048

REACTIONS (14)
  - Anaemia [Recovered/Resolved]
  - Dehydration [Not Recovered/Not Resolved]
  - Weight decreased [Unknown]
  - Hyperhidrosis [Not Recovered/Not Resolved]
  - Dyspepsia [Recovered/Resolved]
  - Gastrooesophageal reflux disease [Unknown]
  - Faeces pale [Not Recovered/Not Resolved]
  - Mouth ulceration [Recovered/Resolved]
  - Oral herpes [Not Recovered/Not Resolved]
  - Dry skin [Not Recovered/Not Resolved]
  - Asthenia [Not Recovered/Not Resolved]
  - Pruritus [Not Recovered/Not Resolved]
  - Nausea [Not Recovered/Not Resolved]
  - Vomiting [Not Recovered/Not Resolved]
